FAERS Safety Report 11159482 (Version 1)
Quarter: 2015Q2

REPORT INFORMATION
  Report Type: Spontaneous
  Country: US (occurrence: US)
  Receive Date: 20150603
  Receipt Date: 20150603
  Transmission Date: 20150821
  Serious: No
  Sender: FDA-Public Use
  Company Number: US-PFIZER INC-2015183153

PATIENT
  Age: 73 Year
  Sex: Female
  Weight: 73 kg

DRUGS (3)
  1. FLECTOR [Suspect]
     Active Substance: DICLOFENAC EPOLAMINE
     Indication: SPINAL COLUMN STENOSIS
     Dosage: 2 DF, 1X/DAY [EVERY 12 HOURS 2 PATCHES A DAY]
     Route: 061
  2. OXYCONTIN [Suspect]
     Active Substance: OXYCODONE HYDROCHLORIDE
     Dosage: 5 MG, 2X/DAY
  3. TYLENOL [Suspect]
     Active Substance: ACETAMINOPHEN
     Dosage: 325 MG, 2X/DAY

REACTIONS (3)
  - Alopecia [Not Recovered/Not Resolved]
  - Arthropathy [Unknown]
  - Upper limb fracture [Unknown]

NARRATIVE: CASE EVENT DATE: 20140611
